FAERS Safety Report 9410486 (Version 2)
Quarter: 2013Q3

REPORT INFORMATION
  Report Type: Report from Study
  Country: JP (occurrence: JP)
  Receive Date: 20130719
  Receipt Date: 20130925
  Transmission Date: 20140515
  Serious: Yes (Other)
  Sender: FDA-Public Use
  Company Number: JP-JNJFOC-20130708871

PATIENT
  Age: 35 Year
  Sex: Male
  Weight: 88 kg

DRUGS (10)
  1. STELARA [Suspect]
     Indication: PSORIASIS
     Route: 058
     Dates: start: 20120926
  2. STELARA [Suspect]
     Indication: PSORIASIS
     Route: 058
     Dates: start: 20130123
  3. STELARA [Suspect]
     Indication: PSORIASIS
     Route: 058
     Dates: start: 20121024
  4. NEORAL [Concomitant]
     Indication: PSORIASIS
     Route: 048
     Dates: start: 20120523, end: 20121113
  5. ANTEBATE [Concomitant]
     Indication: PSORIASIS
     Route: 061
     Dates: start: 20120507
  6. OXAROL [Concomitant]
     Indication: PSORIASIS
     Route: 061
     Dates: start: 20120507
  7. ISCOTIN [Concomitant]
     Indication: PROPHYLAXIS
     Route: 048
     Dates: start: 20120822
  8. PYDOXAL [Concomitant]
     Indication: PROPHYLAXIS
     Route: 065
     Dates: start: 20120822
  9. TALION [Concomitant]
     Indication: PSORIASIS
     Route: 048
     Dates: start: 20121024
  10. VALTREX [Concomitant]
     Indication: GENITAL HERPES
     Route: 048
     Dates: start: 20120926, end: 20120930

REACTIONS (2)
  - Erysipelas [Recovered/Resolved]
  - Tinea pedis [Not Recovered/Not Resolved]
